FAERS Safety Report 5913091-3 (Version None)
Quarter: 2008Q4

REPORT INFORMATION
  Report Type: 
  Country: None (occurrence: None)
  Receive Date: 20081008
  Receipt Date: 20081008
  Transmission Date: 20090506
  Serious: Yes (Death)
  Sender: FDA-Public Use
  Company Number: None

PATIENT
  Age: 86 Year
  Sex: Female
  Weight: 61.2356 kg

DRUGS (1)
  1. DIGITEK 0.125MG BERTK [Suspect]
     Indication: CARDIAC DISORDER
     Dosage: 1 TABLET DAILY ORAL
     Route: 048

REACTIONS (7)
  - ASTHENIA [None]
  - COGNITIVE DISORDER [None]
  - CONFUSIONAL STATE [None]
  - NAUSEA [None]
  - RENAL FAILURE [None]
  - THERAPEUTIC AGENT TOXICITY [None]
  - VOMITING [None]
